FAERS Safety Report 25355408 (Version 1)
Quarter: 2025Q2

REPORT INFORMATION
  Report Type: Spontaneous
  Country: US (occurrence: US)
  Receive Date: 20250524
  Receipt Date: 20250524
  Transmission Date: 20250716
  Serious: No
  Sender: COREPHARMA LLC
  Company Number: US-CorePharma LLC-2177417

PATIENT

DRUGS (1)
  1. SUMATRIPTAN SUCCINATE [Suspect]
     Active Substance: SUMATRIPTAN SUCCINATE
     Indication: Migraine

REACTIONS (7)
  - Presyncope [Unknown]
  - Drug ineffective [Unknown]
  - Depressed mood [Unknown]
  - Thinking abnormal [Unknown]
  - Feeling abnormal [Unknown]
  - Nightmare [Unknown]
  - Hypersomnia [Unknown]
